FAERS Safety Report 25157048 (Version 2)
Quarter: 2025Q2

REPORT INFORMATION
  Report Type: Report from Study
  Country: US (occurrence: US)
  Receive Date: 20250403
  Receipt Date: 20250627
  Transmission Date: 20250716
  Serious: Yes (Other)
  Sender: ABBVIE
  Company Number: US-ABBVIE-6018664

PATIENT
  Age: 68 Year
  Sex: Male

DRUGS (1)
  1. SKYRIZI [Suspect]
     Active Substance: RISANKIZUMAB-RZAA
     Indication: Psoriasis
     Route: 058
     Dates: start: 20241001

REACTIONS (6)
  - Medical procedure [Unknown]
  - Bacterial infection [Recovered/Resolved]
  - Gait inability [Unknown]
  - Tendonitis [Unknown]
  - Urinary tract infection [Unknown]
  - Infection [Unknown]

NARRATIVE: CASE EVENT DATE: 20240101
